FAERS Safety Report 8410475-9 (Version None)
Quarter: 2012Q2

REPORT INFORMATION
  Report Type: 
  Country: None (occurrence: None)
  Receive Date: 20120323
  Receipt Date: 20111202
  Transmission Date: 20120825
  Serious: Yes (Hospitalization)
  Sender: FDA-Public Use
  Company Number: 163-21880-11120581

PATIENT
  Age: 74 Year
  Sex: Male

DRUGS (7)
  1. DILTIAZEM HCL [Concomitant]
  2. LORTAB [Concomitant]
  3. ZEGERID (OMEPRAZOLE) [Concomitant]
  4. EPIVIR [Concomitant]
  5. REVLIMID [Suspect]
     Indication: B-CELL LYMPHOMA
     Dosage: 10 MG, 21 CAPS, PO
     Route: 048
     Dates: start: 20110907
  6. POTASSIUM CHLORIDE [Concomitant]
  7. PREDNISONE TAB [Concomitant]

REACTIONS (1)
  - PNEUMONIA [None]
